FAERS Safety Report 16513765 (Version 1)
Quarter: 2019Q3

REPORT INFORMATION
  Report Type: Spontaneous
  Country: AR (occurrence: AR)
  Receive Date: 20190702
  Receipt Date: 20190702
  Transmission Date: 20191004
  Serious: Yes (Other)
  Sender: FDA-Public Use
  Company Number: AR-PFIZER INC-2019277322

PATIENT
  Age: 78 Year
  Sex: Female

DRUGS (1)
  1. XELJANZ [Suspect]
     Active Substance: TOFACITINIB CITRATE

REACTIONS (8)
  - Peripheral swelling [Unknown]
  - Malaise [Unknown]
  - Joint swelling [Unknown]
  - Syncope [Unknown]
  - Pyrexia [Unknown]
  - Abdominal discomfort [Unknown]
  - Nausea [Unknown]
  - Localised infection [Unknown]
